FAERS Safety Report 20827316 (Version 1)
Quarter: 2022Q2

REPORT INFORMATION
  Report Type: Spontaneous
  Country: US (occurrence: US)
  Receive Date: 20220513
  Receipt Date: 20220513
  Transmission Date: 20220721
  Serious: Yes (Life-Threatening, Hospitalization, Other)
  Sender: FDA-Public Use
  Company Number: US-GLAXOSMITHKLINE-US2022GSK074788

PATIENT

DRUGS (2)
  1. LAMOTRIGINE [Suspect]
     Active Substance: LAMOTRIGINE
     Indication: Product used for unknown indication
     Dosage: UNK
  2. SULFAMETHOXAZOLE\TRIMETHOPRIM [Suspect]
     Active Substance: SULFAMETHOXAZOLE\TRIMETHOPRIM
     Indication: Product used for unknown indication
     Dosage: UNK

REACTIONS (14)
  - Toxic epidermal necrolysis [Recovering/Resolving]
  - Rash [Recovering/Resolving]
  - Pyrexia [Recovering/Resolving]
  - Dysuria [Recovering/Resolving]
  - Dysphagia [Recovering/Resolving]
  - Sunburn [Recovering/Resolving]
  - Rash erythematous [Recovering/Resolving]
  - Skin disorder [Recovering/Resolving]
  - Nikolsky^s sign [Recovering/Resolving]
  - Hypertransaminasaemia [Recovering/Resolving]
  - Leukopenia [Recovering/Resolving]
  - Skin necrosis [Unknown]
  - Inflammation [Recovering/Resolving]
  - Condition aggravated [Recovering/Resolving]
